FAERS Safety Report 21461981 (Version 1)
Quarter: 2022Q4

REPORT INFORMATION
  Report Type: Other
  Country: US (occurrence: None)
  Receive Date: 20221015
  Receipt Date: 20221015
  Transmission Date: 20230113
  Serious: Yes (Other)
  Sender: FDA-Public Use
  Company Number: US-ROCHE-3177562

PATIENT
  Age: 69 Year
  Sex: Female

DRUGS (1)
  1. ESBRIET [Suspect]
     Active Substance: PIRFENIDONE
     Indication: Idiopathic pulmonary fibrosis
     Dosage: DAY 1 THROUGH 7: 1 TABLET BY MOUTH THREE TIMES A DAY WITH MEALS DAY 8 THROUGH 14: 2 TABLETS BY MOUTH
     Route: 048
     Dates: start: 201804

REACTIONS (1)
  - Breast cancer [Not Recovered/Not Resolved]
